FAERS Safety Report 9846984 (Version 1)
Quarter: 2014Q1

REPORT INFORMATION
  Report Type: Spontaneous
  Country: US (occurrence: US)
  Receive Date: 20140127
  Receipt Date: 20140127
  Transmission Date: 20141002
  Serious: No
  Sender: FDA-Public Use
  Company Number: US-TEVA-458403USA

PATIENT
  Sex: Male

DRUGS (2)
  1. CLARAVIS [Suspect]
     Route: 048
     Dates: start: 20140125
  2. CLARAVIS [Suspect]
     Route: 048
     Dates: start: 20140113, end: 20140120

REACTIONS (3)
  - Upper respiratory tract infection [Unknown]
  - Insomnia [Unknown]
  - Abnormal dreams [Unknown]
